FAERS Safety Report 9771473 (Version 2)
Quarter: 2013Q4

REPORT INFORMATION
  Report Type: Report from Study
  Country: US (occurrence: US)
  Receive Date: 20131219
  Receipt Date: 20131219
  Transmission Date: 20140711
  Serious: Yes (Hospitalization)
  Sender: FDA-Public Use
  Company Number: US-ROCHE-1297596

PATIENT
  Age: 75 Year
  Sex: Female
  Weight: 64.92 kg

DRUGS (1)
  1. XELODA [Suspect]
     Indication: BREAST CANCER METASTATIC
     Dosage: EVERY AM AND EVERY PM
     Route: 048
     Dates: start: 20131023, end: 20131030

REACTIONS (11)
  - Skin exfoliation [Recovered/Resolved]
  - Onychoclasis [Recovered/Resolved]
  - Lip blister [Recovered/Resolved]
  - Cheilitis [Recovered/Resolved]
  - Rash macular [Recovered/Resolved]
  - Rash [Recovered/Resolved]
  - Pyrexia [Recovered/Resolved]
  - Fatigue [Not Recovered/Not Resolved]
  - Malaise [Not Recovered/Not Resolved]
  - Weight decreased [Not Recovered/Not Resolved]
  - Nausea [Not Recovered/Not Resolved]
